FAERS Safety Report 13687211 (Version 3)
Quarter: 2017Q3

REPORT INFORMATION
  Report Type: Spontaneous
  Country: US (occurrence: US)
  Receive Date: 20170623
  Receipt Date: 20170821
  Transmission Date: 20171127
  Serious: Yes (Hospitalization, Other)
  Sender: FDA-Public Use
  Company Number: US-ALLERGAN-1725503US

PATIENT
  Age: 62 Year
  Sex: Female
  Weight: 67.57 kg

DRUGS (1)
  1. PYLERA [Suspect]
     Active Substance: BISMUTH SUBCITRATE POTASSIUM\METRONIDAZOLE\TETRACYCLINE HYDROCHLORIDE
     Indication: HELICOBACTER INFECTION
     Dosage: 140MG/ 125MG/ 125MG; 3 PILLS QID
     Route: 048
     Dates: start: 20170110, end: 20170122

REACTIONS (9)
  - Weight decreased [Not Recovered/Not Resolved]
  - Product size issue [Unknown]
  - Inappropriate schedule of drug administration [Unknown]
  - Gastric cancer [Recovered/Resolved]
  - Drug dose omission [Unknown]
  - Drug ineffective [Unknown]
  - Gastric ulcer [Recovered/Resolved]
  - Reflux gastritis [Not Recovered/Not Resolved]
  - Vomiting [Not Recovered/Not Resolved]

NARRATIVE: CASE EVENT DATE: 2017
